FAERS Safety Report 11003118 (Version 1)
Quarter: 2015Q2

REPORT INFORMATION
  Report Type: Spontaneous
  Country: US (occurrence: US)
  Receive Date: 20150409
  Receipt Date: 20150409
  Transmission Date: 20150821
  Serious: Yes (Hospitalization)
  Sender: FDA-Public Use
  Company Number: US-AMGEN-USASP2015033243

PATIENT
  Age: 52 Year
  Sex: Female

DRUGS (3)
  1. METHOTREXATE [Suspect]
     Active Substance: METHOTREXATE
     Indication: PRODUCT USED FOR UNKNOWN INDICATION
     Dosage: 10 MG, QWK (TAKEN FOR AT LEAST A YEAR)
     Route: 048
  2. ENBREL [Suspect]
     Active Substance: ETANERCEPT
     Indication: PSORIASIS
  3. ENBREL [Suspect]
     Active Substance: ETANERCEPT
     Indication: PSORIATIC ARTHROPATHY
     Dosage: 50 MG, 2 TIMES/WK
     Route: 065
     Dates: start: 20041110, end: 2010

REACTIONS (11)
  - Spinal fracture [Recovered/Resolved]
  - Rash generalised [Not Recovered/Not Resolved]
  - Wrist fracture [Recovered/Resolved]
  - Condition aggravated [Not Recovered/Not Resolved]
  - Femur fracture [Recovered/Resolved]
  - Knee arthroplasty [Recovered/Resolved]
  - Cervical vertebral fracture [Recovered/Resolved]
  - Upper limb fracture [Recovered/Resolved]
  - Alopecia [Not Recovered/Not Resolved]
  - Fall [Recovered/Resolved]
  - Device dislocation [Recovered/Resolved]

NARRATIVE: CASE EVENT DATE: 2010
